FAERS Safety Report 19676863 (Version 2)
Quarter: 2021Q3

REPORT INFORMATION
  Report Type: Spontaneous
  Country: CA (occurrence: CA)
  Receive Date: 20210809
  Receipt Date: 20210809
  Transmission Date: 20211014
  Serious: Yes (Hospitalization)
  Sender: FDA-Public Use
  Company Number: CA-PFIZER INC-202100968796

PATIENT
  Age: 79 Year
  Sex: Male
  Weight: 77 kg

DRUGS (24)
  1. ATROPINE. [Concomitant]
     Active Substance: ATROPINE
  2. AMLODIPINE [Concomitant]
     Active Substance: AMLODIPINE BESYLATE
  3. HYDROMORPHONE [Concomitant]
     Active Substance: HYDROMORPHONE
  4. LORAZEPAM. [Concomitant]
     Active Substance: LORAZEPAM
  5. MIDAZOLAM. [Concomitant]
     Active Substance: MIDAZOLAM
  6. PROPOFOL. [Concomitant]
     Active Substance: PROPOFOL
     Route: 065
  7. ROSUVASTATIN. [Concomitant]
     Active Substance: ROSUVASTATIN
     Route: 065
  8. TAZOCIN [Concomitant]
     Active Substance: PIPERACILLIN SODIUM\TAZOBACTAM SODIUM
  9. PLAVIX [Suspect]
     Active Substance: CLOPIDOGREL BISULFATE
  10. CHLORHEXIDINE [Concomitant]
     Active Substance: CHLORHEXIDINE
  11. HYDRALAZINE [Concomitant]
     Active Substance: HYDRALAZINE HYDROCHLORIDE
  12. PANTOLOC [Concomitant]
     Active Substance: PANTOPRAZOLE SODIUM
  13. FRAGMIN [Suspect]
     Active Substance: DALTEPARIN SODIUM
     Dosage: 7500 IU, 1 EVERY 12 HOURS
     Route: 058
  14. FENTANYL. [Concomitant]
     Active Substance: FENTANYL
  15. LABETALOL [Concomitant]
     Active Substance: LABETALOL\LABETALOL HYDROCHLORIDE
  16. ONDANSETRON [Concomitant]
     Active Substance: ONDANSETRON
  17. QUETIAPINE. [Concomitant]
     Active Substance: QUETIAPINE
  18. THIAMINE. [Concomitant]
     Active Substance: THIAMINE
  19. HEPARIN SODIUM. [Suspect]
     Active Substance: HEPARIN SODIUM
     Dosage: UNK
     Route: 042
  20. ASA [Suspect]
     Active Substance: ASPIRIN
     Route: 065
  21. CLONIDINE. [Concomitant]
     Active Substance: CLONIDINE
  22. NICODERM CQ [Concomitant]
     Active Substance: NICOTINE
  23. NOREPINEPHRINE. [Concomitant]
     Active Substance: NOREPINEPHRINE
  24. POTASSIUM [Concomitant]
     Active Substance: POTASSIUM

REACTIONS (1)
  - Gastrointestinal vascular malformation haemorrhagic [Recovered/Resolved]
